FAERS Safety Report 4636689-1 (Version None)
Quarter: 2005Q2

REPORT INFORMATION
  Report Type: 
  Country: None (occurrence: None)
  Receive Date: 20050414
  Receipt Date: 20050329
  Transmission Date: 20051028
  Serious: Yes (Other)
  Sender: FDA-Public Use
  Company Number: 8009728

PATIENT
  Sex: Female

DRUGS (1)
  1. LEVETIRACETAM [Suspect]

REACTIONS (5)
  - CAESAREAN SECTION [None]
  - DRUG EXPOSURE DURING PREGNANCY [None]
  - POSTPARTUM HAEMORRHAGE [None]
  - PREGNANCY [None]
  - UMBILICAL CORD PROLAPSE [None]
